FAERS Safety Report 21987181 (Version 2)
Quarter: 2023Q2

REPORT INFORMATION
  Report Type: Spontaneous
  Country: TH (occurrence: TH)
  Receive Date: 20230213
  Receipt Date: 20230418
  Transmission Date: 20230722
  Serious: Yes (Other)
  Sender: FDA-Public Use
  Company Number: TH-002147023-NVSC2023TH030870

PATIENT

DRUGS (1)
  1. SECUKINUMAB [Suspect]
     Active Substance: SECUKINUMAB
     Indication: Psoriasis
     Dosage: 300 MG EQUAL TO 2 INJECTIONS (10 INJECTIONS FOR WEEK 4 AND 16 INJECTIONS FOR WEEK 16)
     Route: 065

REACTIONS (1)
  - Pancytopenia [Recovering/Resolving]
